FAERS Safety Report 7916589-1 (Version None)
Quarter: 2011Q4

REPORT INFORMATION
  Report Type: 
  Country: None (occurrence: None)
  Receive Date: 20111114
  Receipt Date: 20111028
  Transmission Date: 20120403
  Serious: Yes (Hospitalization)
  Sender: FDA-Public Use
  Company Number: 2011P1009881

PATIENT
  Age: 62 Year
  Sex: Male
  Weight: 91.173 kg

DRUGS (17)
  1. WARFARIN SODIUM [Suspect]
     Indication: THROMBOSIS
     Dosage: 2.5 MG;MON, TUES ; 5 MG;WEDS, THURS, FRI, SAT AND SUN
     Dates: start: 20020101
  2. WARFARIN SODIUM [Suspect]
     Indication: THROMBOSIS
     Dosage: 2.5 MG;MON, TUES ; 5 MG;WEDS, THURS, FRI, SAT AND SUN
     Dates: start: 20020101
  3. PROVENTIL [Concomitant]
  4. ARICEPT [Concomitant]
  5. OXYGEN [Concomitant]
  6. POTASSIUM CHLORIDE [Concomitant]
  7. FOLIC ACID [Concomitant]
  8. NEXIUM [Concomitant]
  9. TRAZODONE HCL [Concomitant]
  10. LORAZEPAM [Concomitant]
  11. HYDROCODONE BITARTRATE + ACETAMINOPHEN [Concomitant]
  12. ZOLPIDEM [Concomitant]
  13. ASPIRIN [Concomitant]
  14. VITAMIN B-12 [Concomitant]
  15. LASIX [Concomitant]
  16. SIMVASTATIN [Concomitant]
  17. ALLOPURINOL [Concomitant]

REACTIONS (7)
  - PRODUCT SUBSTITUTION ISSUE [None]
  - DRY SKIN [None]
  - INCISIONAL HERNIA [None]
  - THROMBOSIS [None]
  - PAIN IN EXTREMITY [None]
  - OEDEMA PERIPHERAL [None]
  - SKIN EXFOLIATION [None]
